FAERS Safety Report 11052750 (Version 2)
Quarter: 2015Q2

REPORT INFORMATION
  Report Type: Spontaneous
  Country: SE (occurrence: SE)
  Receive Date: 20150421
  Receipt Date: 20150421
  Transmission Date: 20150821
  Serious: Yes (Other)
  Sender: FDA-Public Use
  Company Number: ALCN2015SE002556

PATIENT
  Age: 68 Year
  Sex: Male

DRUGS (3)
  1. TRAVATAN [Suspect]
     Active Substance: TRAVOPROST
     Dosage: UNK
     Route: 047
  2. NEVANAC [Suspect]
     Active Substance: NEPAFENAC
     Dosage: UNK
     Route: 047
     Dates: start: 20140415
  3. ENALAPRIL [Suspect]
     Active Substance: ENALAPRIL
     Dosage: 0.5 DF, QD
     Dates: start: 20040401

REACTIONS (4)
  - Tinnitus [Not Recovered/Not Resolved]
  - Balance disorder [Unknown]
  - Chest pain [Unknown]
  - Pain in extremity [Unknown]

NARRATIVE: CASE EVENT DATE: 20040417
